FAERS Safety Report 5207363-8 (Version None)
Quarter: 2007Q1

REPORT INFORMATION
  Report Type: 
  Country: None (occurrence: None)
  Receive Date: 20070110
  Receipt Date: 20061226
  Transmission Date: 20070707
  Serious: Yes (Hospitalization)
  Sender: FDA-Public Use
  Company Number: SUS1-2006-00354

PATIENT
  Age: 22 Year
  Sex: Female

DRUGS (2)
  1. PENTASA [Suspect]
     Indication: COLITIS ULCERATIVE
     Dosage: 1000 MG, 3X/DAY:  TID, ORAL
     Route: 048
     Dates: start: 20050705, end: 20060318
  2. PENTASA [Suspect]
     Indication: COLITIS ULCERATIVE
     Dosage: 1000 MG DAILY, RECTAL
     Route: 054
     Dates: start: 20050719, end: 20060410

REACTIONS (1)
  - INTERSTITIAL LUNG DISEASE [None]
